FAERS Safety Report 6493695-2 (Version None)
Quarter: 2009Q4

REPORT INFORMATION
  Report Type: 
  Country: None (occurrence: None)
  Receive Date: 20091214
  Receipt Date: 20091207
  Transmission Date: 20100525
  Serious: Yes (Hospitalization)
  Sender: FDA-Public Use
  Company Number: B0614707A

PATIENT
  Sex: Male
  Weight: 69 kg

DRUGS (3)
  1. PAROXETINE HCL [Suspect]
     Indication: DEPRESSION
     Dosage: 20MG PER DAY
     Route: 048
     Dates: start: 19890101
  2. METHYLFENIDAAT [Concomitant]
     Route: 048
     Dates: start: 20030101
  3. OXAZEPAM [Concomitant]
     Dosage: 10MG THREE TIMES PER DAY
     Route: 048
     Dates: start: 20030101

REACTIONS (1)
  - CARDIOMYOPATHY [None]
